FAERS Safety Report 23894670 (Version 1)
Quarter: 2024Q2

REPORT INFORMATION
  Report Type: Spontaneous
  Country: US (occurrence: None)
  Receive Date: 20240524
  Receipt Date: 20240524
  Transmission Date: 20240715
  Serious: No
  Sender: FDA-Public Use
  Company Number: US-ROCHE-3361734

PATIENT
  Sex: Female
  Weight: 119.4 kg

DRUGS (1)
  1. OCREVUS [Suspect]
     Active Substance: OCRELIZUMAB
     Indication: Multiple sclerosis
     Dosage: 30MG SOLUTION
     Route: 042
     Dates: start: 202202, end: 20230322

REACTIONS (1)
  - Maternal exposure timing unspecified [Unknown]
